FAERS Safety Report 8292526-8 (Version None)
Quarter: 2012Q2

REPORT INFORMATION
  Report Type: 
  Country: None (occurrence: None)
  Receive Date: 20120417
  Receipt Date: 20111005
  Transmission Date: 20120825
  Serious: No
  Sender: FDA-Public Use
  Company Number: US-ASTRAZENECA-2010SE28251

PATIENT
  Age: 54 Year
  Sex: Female

DRUGS (3)
  1. CRESTOR [Concomitant]
  2. NEXIUM [Suspect]
     Route: 048
  3. NEXIUM [Suspect]
     Route: 048

REACTIONS (6)
  - FLATULENCE [None]
  - CHOKING [None]
  - DYSPEPSIA [None]
  - CHEST PAIN [None]
  - CHEST DISCOMFORT [None]
  - INCORRECT DOSE ADMINISTERED [None]
